FAERS Safety Report 8378595-5 (Version None)
Quarter: 2012Q2

REPORT INFORMATION
  Report Type: 
  Country: None (occurrence: None)
  Receive Date: 20120522
  Receipt Date: 20120126
  Transmission Date: 20120825
  Serious: No
  Sender: FDA-Public Use
  Company Number: US-ASTRAZENECA-2012SE06011

PATIENT
  Sex: Female

DRUGS (5)
  1. PRILOSEC [Suspect]
     Indication: HIATUS HERNIA
     Route: 048
  2. CRESTOR [Suspect]
     Route: 048
  3. ZETIA [Concomitant]
  4. PRILOSEC [Suspect]
     Indication: GASTROOESOPHAGEAL REFLUX DISEASE
     Route: 048
  5. SIMVASTATIN [Suspect]
     Route: 065

REACTIONS (2)
  - OFF LABEL USE [None]
  - RENAL DISORDER [None]
